FAERS Safety Report 16200074 (Version 2)
Quarter: 2019Q3

REPORT INFORMATION
  Report Type: Report from Study
  Country: US (occurrence: US)
  Receive Date: 20190415
  Receipt Date: 20190702
  Transmission Date: 20191004
  Serious: No
  Sender: FDA-Public Use
  Company Number: US-SA-2017SA250910

PATIENT
  Age: 32 Year
  Sex: Male

DRUGS (1)
  1. LARONIDASE [Suspect]
     Active Substance: LARONIDASE
     Indication: MUCOPOLYSACCHARIDOSIS I
     Dosage: UNK 46.40 Q1
     Route: 042
     Dates: start: 20061103

REACTIONS (4)
  - Ear pain [Recovering/Resolving]
  - Upper respiratory tract infection [Recovering/Resolving]
  - Malaise [Unknown]
  - Ill-defined disorder [Unknown]

NARRATIVE: CASE EVENT DATE: 2019
